FAERS Safety Report 5694894-X (Version None)
Quarter: 2008Q2

REPORT INFORMATION
  Report Type: 
  Country: None (occurrence: None)
  Receive Date: 20080404
  Receipt Date: 20080328
  Transmission Date: 20081010
  Serious: Yes (Other)
  Sender: FDA-Public Use
  Company Number: PHEH2008US03332

PATIENT
  Age: 55 Year
  Sex: Male

DRUGS (2)
  1. ZOMETA [Suspect]
  2. REVLIMID [Suspect]
     Indication: MULTIPLE MYELOMA
     Dosage: 25MG QD
     Dates: start: 20070608

REACTIONS (4)
  - DRUG HYPERSENSITIVITY [None]
  - GINGIVAL INFECTION [None]
  - GINGIVAL RECESSION [None]
  - OSTEONECROSIS [None]
